FAERS Safety Report 4660270-1 (Version None)
Quarter: 2005Q2

REPORT INFORMATION
  Report Type: 
  Country: None (occurrence: None)
  Receive Date: 20050512
  Receipt Date: 20050429
  Transmission Date: 20051028
  Serious: Yes (Hospitalization)
  Sender: FDA-Public Use
  Company Number: 2004-10-1538

PATIENT
  Age: 70 Year
  Sex: Female
  Weight: 57 kg

DRUGS (9)
  1. ASPIRIN [Suspect]
     Dosage: 325MG PER DAY
     Route: 048
     Dates: end: 20040414
  2. HEPARIN [Suspect]
     Indication: MYOCARDIAL INFARCTION
     Route: 042
     Dates: start: 20040412, end: 20040412
  3. PLAVIX [Suspect]
     Dosage: 300MG PER DAY
     Route: 048
  4. NAPROXEN [Suspect]
     Indication: SHOULDER PAIN
     Dosage: 250MG TWICE PER DAY
     Route: 048
     Dates: end: 20040414
  5. ATENOLOL [Concomitant]
     Dosage: 25MG PER DAY
  6. INSULIN [Concomitant]
     Dosage: 5MG PER DAY
  7. ALTACE [Concomitant]
     Dosage: 10MG PER DAY
  8. ZOCOR [Concomitant]
     Dosage: 20MG PER DAY
  9. INTEGRILIN [Concomitant]
     Indication: MYOCARDIAL INFARCTION
     Route: 042
     Dates: start: 20040412, end: 20040413

REACTIONS (8)
  - CHEST PAIN [None]
  - DYSPNOEA [None]
  - GASTRIC ULCER [None]
  - GASTRITIS EROSIVE [None]
  - GASTROINTESTINAL HAEMORRHAGE [None]
  - HAEMATOCHEZIA [None]
  - HYPOTENSION [None]
  - SYNCOPE [None]
